FAERS Safety Report 7862633-X (Version None)
Quarter: 2011Q4

REPORT INFORMATION
  Report Type: 
  Country: None (occurrence: None)
  Receive Date: 20111027
  Receipt Date: 20101110
  Transmission Date: 20120403
  Serious: No
  Sender: FDA-Public Use
  Company Number: US-AMGEN-USASP2010004446

PATIENT
  Sex: Female

DRUGS (2)
  1. ENBREL [Suspect]
     Indication: PSORIATIC ARTHROPATHY
     Dates: start: 20080101, end: 20100701
  2. METHOTREXATE [Concomitant]

REACTIONS (4)
  - HYPOALBUMINAEMIA [None]
  - CELLULITIS [None]
  - OEDEMA [None]
  - PSORIATIC ARTHROPATHY [None]
